FAERS Safety Report 12094651 (Version 1)
Quarter: 2016Q1

REPORT INFORMATION
  Report Type: Spontaneous
  Country: JP (occurrence: JP)
  Receive Date: 20160219
  Receipt Date: 20160219
  Transmission Date: 20160526
  Serious: Yes (Other)
  Sender: FDA-Public Use
  Company Number: JP-SA-2016SA032859

PATIENT
  Age: 64 Year
  Sex: Male
  Weight: 58 kg

DRUGS (7)
  1. ELPLAT [Suspect]
     Active Substance: OXALIPLATIN
     Indication: RECTAL CANCER
     Dosage: INJECTION
     Route: 041
  2. 5-FU [Concomitant]
     Active Substance: FLUOROURACIL
     Dosage: BOLUS
     Route: 040
  3. ELPLAT [Suspect]
     Active Substance: OXALIPLATIN
     Indication: RECTAL CANCER
     Dosage: INJECTION
     Route: 041
  4. 5-FU [Concomitant]
     Active Substance: FLUOROURACIL
     Dosage: CONTINUOUS INFUSION, DAY 1-2
  5. LEVOFOLINATE [Suspect]
     Active Substance: LEVOLEUCOVORIN CALCIUM
     Indication: RECTAL CANCER
     Route: 041
  6. ERBITUX [Concomitant]
     Active Substance: CETUXIMAB
  7. LEVOFOLINATE [Suspect]
     Active Substance: LEVOLEUCOVORIN CALCIUM
     Indication: RECTAL CANCER
     Dosage: INJECTION
     Route: 041

REACTIONS (3)
  - Anaphylactic shock [Recovering/Resolving]
  - Depression [Unknown]
  - Acne [Unknown]
